FAERS Safety Report 4426698-X (Version None)
Quarter: 2004Q3

REPORT INFORMATION
  Report Type: 
  Country: None (occurrence: None)
  Receive Date: 20040816
  Receipt Date: 20040803
  Transmission Date: 20050211
  Serious: Yes (Hospitalization)
  Sender: FDA-Public Use
  Company Number: CA-MERCK-0408CAN00010

PATIENT
  Age: 55 Year
  Sex: Male

DRUGS (5)
  1. ASPIRIN [Concomitant]
     Route: 048
  2. ATORVASTATIN CALCIUM [Concomitant]
     Route: 048
  3. INSULIN HUMAN, ISOPHANE [Concomitant]
     Indication: DIABETES MELLITUS INSULIN-DEPENDENT
     Route: 058
  4. INSULIN LISPRO [Concomitant]
     Indication: DIABETES MELLITUS INSULIN-DEPENDENT
     Route: 058
  5. VIOXX [Suspect]
     Route: 048

REACTIONS (2)
  - COUGH [None]
  - MENINGITIS ASEPTIC [None]
